FAERS Safety Report 8381829-4 (Version None)
Quarter: 2012Q2

REPORT INFORMATION
  Report Type: 
  Country: None (occurrence: None)
  Receive Date: 20120522
  Receipt Date: 20120522
  Transmission Date: 20120825
  Serious: Yes (Life-Threatening, Hospitalization)
  Sender: FDA-Public Use
  Company Number: None

PATIENT
  Age: 42 Year
  Sex: Female
  Weight: 70.3075 kg

DRUGS (1)
  1. AZITHROMYCIN [Suspect]
     Indication: LOWER RESPIRATORY TRACT INFECTION
     Dosage: 2 FIRST DAY, 1 PILL FOR 4 DAYS DAILY PO
     Route: 048
     Dates: start: 20120515, end: 20120519

REACTIONS (1)
  - APPARENT DEATH [None]
